FAERS Safety Report 8886981 (Version 1)
Quarter: 2012Q4

REPORT INFORMATION
  Report Type: 
  Country: GB (occurrence: GB)
  Receive Date: 20121105
  Receipt Date: 20121105
  Transmission Date: 20130627
  Serious: Yes (Other)
  Sender: FDA-Public Use
  Company Number: PHHY2012GB099521

PATIENT
  Age: 48 Year
  Sex: Female

DRUGS (1)
  1. MYCOPHENOLATE MOFETIL [Suspect]
     Indication: SYSTEMIC LUPUS ERYTHEMATOSUS

REACTIONS (10)
  - Radiculopathy [Recovering/Resolving]
  - Paraesthesia [Recovering/Resolving]
  - Hypokinesia [Recovering/Resolving]
  - Hyporeflexia [Recovering/Resolving]
  - Herpes zoster [Recovering/Resolving]
  - Rash vesicular [Recovering/Resolving]
  - Pain [Recovering/Resolving]
  - Hypoaesthesia [Recovering/Resolving]
  - Scar [Recovering/Resolving]
  - Skin lesion [Recovering/Resolving]
